FAERS Safety Report 11786755 (Version 4)
Quarter: 2016Q2

REPORT INFORMATION
  Report Type: Spontaneous
  Country: HR (occurrence: HR)
  Receive Date: 20151130
  Receipt Date: 20160523
  Transmission Date: 20160815
  Serious: Yes (Death, Other)
  Sender: FDA-Public Use
  Company Number: HR-PFIZER INC-2015405931

PATIENT
  Age: 63 Year
  Sex: Female

DRUGS (3)
  1. COLISTIN [Suspect]
     Active Substance: COLISTIN
     Indication: ANTIBIOTIC PROPHYLAXIS
     Dosage: 1 MG, 3X/DAY
     Route: 042
     Dates: start: 20150925
  2. LINEZOLID. [Suspect]
     Active Substance: LINEZOLID
     Dosage: 600 MG, 2X/DAY
     Route: 042
     Dates: start: 20150928
  3. CANCIDAS [Suspect]
     Active Substance: CASPOFUNGIN ACETATE
     Indication: ANTIBIOTIC PROPHYLAXIS
     Dosage: 70 MG, UNK
     Dates: start: 20151007

REACTIONS (10)
  - Renal failure [Fatal]
  - Septic shock [Fatal]
  - Cardiac failure [Fatal]
  - Thermal burn [Fatal]
  - Respiratory arrest [Fatal]
  - Circulatory collapse [Fatal]
  - Sepsis [Fatal]
  - Cardiac arrest [Fatal]
  - Pneumonia [Fatal]
  - Multiple organ dysfunction syndrome [Fatal]

NARRATIVE: CASE EVENT DATE: 2015
